FAERS Safety Report 22051105 (Version 3)
Quarter: 2023Q1

REPORT INFORMATION
  Report Type: Spontaneous
  Country: JP (occurrence: JP)
  Receive Date: 20230301
  Receipt Date: 20230309
  Transmission Date: 20230418
  Serious: Yes (Other)
  Sender: FDA-Public Use
  Company Number: JP-MLMSERVICE-20230217-4100674-1

PATIENT
  Age: 71 Year
  Sex: Female

DRUGS (6)
  1. OXALIPLATIN [Suspect]
     Active Substance: OXALIPLATIN
     Indication: Colon cancer
     Dosage: UNK
  2. OXALIPLATIN [Suspect]
     Active Substance: OXALIPLATIN
     Indication: Metastases to lymph nodes
  3. CAPECITABINE [Concomitant]
     Active Substance: CAPECITABINE
     Indication: Metastases to lymph nodes
     Dosage: UNK
  4. CAPECITABINE [Concomitant]
     Active Substance: CAPECITABINE
     Indication: Colon cancer
  5. BEVACIZUMAB [Concomitant]
     Active Substance: BEVACIZUMAB
     Indication: Colon cancer
     Dosage: UNK
  6. BEVACIZUMAB [Concomitant]
     Active Substance: BEVACIZUMAB
     Indication: Metastases to lymph nodes

REACTIONS (1)
  - Neuropathy peripheral [Unknown]
